FAERS Safety Report 8432566-9 (Version None)
Quarter: 2012Q2

REPORT INFORMATION
  Report Type: 
  Country: None (occurrence: None)
  Receive Date: 20120607
  Receipt Date: 20120529
  Transmission Date: 20120825
  Serious: Yes (Other)
  Sender: FDA-Public Use
  Company Number: 2012MA006671

PATIENT
  Age: 22 Year
  Sex: Male
  Weight: 77.1115 kg

DRUGS (3)
  1. LORAZEPAM [Concomitant]
  2. LORAZEPAM [Suspect]
     Indication: PANIC DISORDER
     Dosage: 0.5 MG;BID;PO
     Route: 048
     Dates: start: 20120301, end: 20120301
  3. VYVANSE [Concomitant]

REACTIONS (4)
  - PRODUCT QUALITY ISSUE [None]
  - DRUG INEFFECTIVE [None]
  - DEREALISATION [None]
  - DEPERSONALISATION [None]
